FAERS Safety Report 13451998 (Version 1)
Quarter: 2017Q2

REPORT INFORMATION
  Report Type: Spontaneous
  Country: US (occurrence: US)
  Receive Date: 20170418
  Receipt Date: 20170418
  Transmission Date: 20170830
  Serious: No
  Sender: FDA-Public Use
  Company Number: US-ZYDUS-010600

PATIENT
  Age: 52 Year
  Sex: Female

DRUGS (2)
  1. VALPROIC ACID. [Suspect]
     Active Substance: VALPROIC ACID
     Indication: BIPOLAR DISORDER
     Route: 048
     Dates: start: 20150903, end: 201511
  2. OLANZAPINE. [Suspect]
     Active Substance: OLANZAPINE
     Route: 048
     Dates: start: 20150903

REACTIONS (7)
  - Pollakiuria [Recovered/Resolved]
  - Abdominal distension [Recovered/Resolved]
  - Abdominal pain upper [Recovered/Resolved]
  - Balance disorder [Recovered/Resolved]
  - Thirst [Recovered/Resolved]
  - Joint swelling [Recovered/Resolved]
  - Tremor [Recovered/Resolved]

NARRATIVE: CASE EVENT DATE: 2015
